FAERS Safety Report 15994548 (Version 1)
Quarter: 2019Q1

REPORT INFORMATION
  Report Type: Spontaneous
  Country: US (occurrence: US)
  Receive Date: 20190221
  Receipt Date: 20190221
  Transmission Date: 20190418
  Serious: Yes (Other)
  Sender: FDA-Public Use
  Company Number: None

PATIENT
  Age: 26 Year
  Sex: Female
  Weight: 92.7 kg

DRUGS (5)
  1. ADMELOG [Concomitant]
     Active Substance: INSULIN LISPRO
  2. FLUCONAZOLE. [Concomitant]
     Active Substance: FLUCONAZOLE
  3. FLUCONAZOLE TABLET USP 150 MG [Suspect]
     Active Substance: FLUCONAZOLE
     Indication: FUNGAL INFECTION
     Dosage: ?          QUANTITY:1 TABLET(S);?
     Route: 048
  4. PRENATAL MULTIVITAMIN [Concomitant]
  5. TUMS [Concomitant]
     Active Substance: CALCIUM CARBONATE

REACTIONS (6)
  - Vaginal discharge [None]
  - Exposure during pregnancy [None]
  - Back pain [None]
  - Abortion spontaneous [None]
  - Pollakiuria [None]
  - Dyspepsia [None]

NARRATIVE: CASE EVENT DATE: 20190218
